FAERS Safety Report 5586023-8 (Version None)
Quarter: 2007Q4

REPORT INFORMATION
  Report Type: 
  Country: None (occurrence: None)
  Receive Date: 20071205
  Receipt Date: 20061106
  Transmission Date: 20080405
  Serious: Yes (Hospitalization)
  Sender: FDA-Public Use
  Company Number: HQWYE966231OCT06

PATIENT
  Age: 52 Year
  Sex: Male

DRUGS (3)
  1. EFFEXOR XR [Suspect]
     Dosage: 225 MG 1X PER 1 DAY, ORAL
     Route: 048
     Dates: start: 20010101, end: 20060101
  2. LAMICTAL [Concomitant]
  3. ABILIFY [Concomitant]

REACTIONS (1)
  - HEPATIC FAILURE [None]
